FAERS Safety Report 8928002 (Version 1)
Quarter: 2012Q4

REPORT INFORMATION
  Report Type: Spontaneous
  Country: US (occurrence: None)
  Receive Date: 20121126
  Receipt Date: 20121126
  Transmission Date: 20130627
  Serious: No
  Sender: FDA-Public Use
  Company Number: None

PATIENT
  Age: 51 Year
  Sex: Male
  Weight: 184.16 kg

DRUGS (1)
  1. FLUOXETINE HCL 40 MG CAPSULE TEVA USA [Suspect]
     Indication: DEPRESSION
     Dosage: 1 a day
     Route: 048
     Dates: start: 20120901, end: 20121113

REACTIONS (1)
  - Depression [None]
